FAERS Safety Report 5164849-2 (Version None)
Quarter: 2006Q4

REPORT INFORMATION
  Report Type: 
  Country: None (occurrence: None)
  Receive Date: 20061205
  Receipt Date: 20061122
  Transmission Date: 20070319
  Serious: Yes (Other)
  Sender: FDA-Public Use
  Company Number: US-SANOFI-SYNTHELABO-A03200607024

PATIENT
  Sex: Male

DRUGS (16)
  1. PLAVIX [Suspect]
     Indication: TRANSIENT ISCHAEMIC ATTACK
     Route: 048
     Dates: start: 20051101
  2. PLAVIX [Suspect]
     Indication: ANGINA UNSTABLE
     Route: 048
     Dates: start: 20051101
  3. ^GOODY POWDER^ [Concomitant]
     Dosage: UNK
     Route: 048
  4. PREDNISONE TAB [Concomitant]
     Route: 048
     Dates: start: 20040101
  5. TOPROL-XL [Concomitant]
     Route: 048
  6. ISOSORBIDE [Concomitant]
     Route: 048
  7. SUDAFED 12 HOUR [Concomitant]
     Dosage: PRN DAILY (DOSE UNSPECIFIED)
     Route: 048
  8. ASPIRIN [Concomitant]
     Route: 048
  9. TRICOR [Concomitant]
     Route: 048
     Dates: start: 20060801
  10. CRESTOR [Concomitant]
     Route: 048
  11. OXYCODONE HCL [Concomitant]
     Dosage: 4 TABLETS DAILY
     Route: 048
  12. NITROGLYCERIN [Concomitant]
     Dosage: UNK
     Route: 060
  13. XANAX [Concomitant]
     Dosage: 0.5 MG HS PRN SLEEP
     Route: 048
  14. XALATAN [Concomitant]
     Dosage: UNK
     Route: 047
     Dates: start: 20060101
  15. PLETAL [Concomitant]
     Route: 048
  16. ALLOPURINOL [Concomitant]
     Route: 048

REACTIONS (15)
  - ABDOMINAL PAIN [None]
  - BRONCHITIS [None]
  - CATARACT [None]
  - DEPRESSION [None]
  - DIARRHOEA [None]
  - DIZZINESS [None]
  - FATIGUE [None]
  - GLAUCOMA [None]
  - NAUSEA [None]
  - PAIN [None]
  - PLEURISY [None]
  - PNEUMONIA [None]
  - RASH ERYTHEMATOUS [None]
  - RENAL FAILURE ACUTE [None]
  - SINUSITIS [None]
